FAERS Safety Report 22367073 (Version 1)
Quarter: 2023Q2

REPORT INFORMATION
  Report Type: Spontaneous
  Country: US (occurrence: US)
  Receive Date: 20230525
  Receipt Date: 20230525
  Transmission Date: 20230721
  Serious: No
  Sender: FDA-Public Use
  Company Number: US-SA-SAC20230524001355

PATIENT
  Sex: Male
  Weight: 54 kg

DRUGS (8)
  1. DUPIXENT [Suspect]
     Active Substance: DUPILUMAB
     Indication: Illness
     Dosage: 300 MG, QOW
     Route: 058
     Dates: start: 20220429
  2. DUPIXENT [Suspect]
     Active Substance: DUPILUMAB
     Indication: Dermatitis atopic
  3. MODERNA COVID-19 VACCINE [Concomitant]
     Active Substance: ELASOMERAN
     Dosage: UNK
  4. SHINGRIX [Concomitant]
     Active Substance: RECOMBINANT VARICELLA ZOSTER VIRUS (VZV) GLYCOPROTEIN E
     Dosage: UNK
  5. PARAFFIN [Concomitant]
     Active Substance: PARAFFIN
     Dosage: UNK
  6. DESOXIMETASONE [Concomitant]
     Active Substance: DESOXIMETASONE
     Dosage: UNK
  7. TACROLIMUS [Concomitant]
     Active Substance: TACROLIMUS
     Dosage: UNK
  8. TAMSULOSIN HYDROCHLORIDE [Concomitant]
     Active Substance: TAMSULOSIN HYDROCHLORIDE
     Dosage: UNK

REACTIONS (1)
  - Weight gain poor [Unknown]
